FAERS Safety Report 24383386 (Version 1)
Quarter: 2024Q3

REPORT INFORMATION
  Report Type: Spontaneous
  Country: US (occurrence: None)
  Receive Date: 20240930
  Receipt Date: 20240930
  Transmission Date: 20241016
  Serious: Yes (Other)
  Sender: Public
  Company Number: None

PATIENT
  Age: 75 Year

DRUGS (2)
  1. DOCETAXEL [Suspect]
     Active Substance: DOCETAXEL
     Dosage: 130 MG
     Dates: start: 20240814, end: 20240904
  2. DOCETAXEL [Suspect]
     Active Substance: DOCETAXEL
     Dosage: 150 MG

REACTIONS (1)
  - Stomatitis [None]

NARRATIVE: CASE EVENT DATE: 20240904
